FAERS Safety Report 7699657-1 (Version None)
Quarter: 2011Q3

REPORT INFORMATION
  Report Type: 
  Country: None (occurrence: None)
  Receive Date: 20110822
  Receipt Date: 20110809
  Transmission Date: 20111222
  Serious: No
  Sender: FDA-Public Use
  Company Number: US-BIOGENIDEC-2011BI028514

PATIENT
  Age: 46 Year
  Sex: Female

DRUGS (2)
  1. TYSABRI [Suspect]
     Indication: MULTIPLE SCLEROSIS
     Route: 042
     Dates: start: 20061116, end: 20110420
  2. TYSABRI [Suspect]
     Route: 042
     Dates: start: 20110802

REACTIONS (3)
  - PAIN IN EXTREMITY [None]
  - MOBILITY DECREASED [None]
  - FATIGUE [None]
